FAERS Safety Report 6097132-1 (Version None)
Quarter: 2009Q1

REPORT INFORMATION
  Report Type: 
  Country: None (occurrence: None)
  Receive Date: 20090227
  Receipt Date: 20090217
  Transmission Date: 20090719
  Serious: Yes (Death)
  Sender: FDA-Public Use
  Company Number: US-PFIZER INC-2006150031

PATIENT
  Sex: Female

DRUGS (3)
  1. CELEBREX [Suspect]
     Indication: ARTHRITIS
     Dates: start: 19991026
  2. BEXTRA [Suspect]
  3. VIOXX [Suspect]

REACTIONS (2)
  - ARTERIOSCLEROSIS [None]
  - CORONARY ARTERY DISEASE [None]
